FAERS Safety Report 26192825 (Version 1)
Quarter: 2025Q4

REPORT INFORMATION
  Report Type: Spontaneous
  Country: EU (occurrence: EU)
  Receive Date: 20251223
  Receipt Date: 20251223
  Transmission Date: 20260118
  Serious: Yes (Other)
  Sender: PFIZER
  Company Number: EU-PFIZER INC-PV202500148976

PATIENT
  Age: 68 Year
  Sex: Male

DRUGS (1)
  1. LORLATINIB [Suspect]
     Active Substance: LORLATINIB
     Indication: Non-small cell lung cancer
     Dosage: UNK

REACTIONS (4)
  - Non-small cell lung cancer [Unknown]
  - Malignant neoplasm progression [Unknown]
  - Endocarditis noninfective [Unknown]
  - Off label use [Unknown]
